FAERS Safety Report 20087660 (Version 1)
Quarter: 2021Q4

REPORT INFORMATION
  Report Type: Spontaneous
  Country: FR (occurrence: FR)
  Receive Date: 20211118
  Receipt Date: 20211118
  Transmission Date: 20220304
  Serious: Yes (Death, Life-Threatening, Hospitalization, Other)
  Sender: FDA-Public Use
  Company Number: None

PATIENT
  Age: 56 Year
  Sex: Male
  Weight: 87 kg

DRUGS (8)
  1. DEXAMETHASONE [Suspect]
     Active Substance: DEXAMETHASONE
     Indication: COVID-19 pneumonia
     Dosage: 10 MILLIGRAM, QD
     Dates: start: 20210209, end: 20210218
  2. TOCILIZUMAB [Suspect]
     Active Substance: TOCILIZUMAB
     Indication: COVID-19 pneumonia
     Dosage: 8 MILLIGRAM/KILOGRAM, 2 COURSES OF 8 MG / KG 48 HOURS APART
     Route: 042
     Dates: start: 20210209, end: 20210211
  3. COVERAM [Concomitant]
     Active Substance: AMLODIPINE\PERINDOPRIL
     Indication: Hypertension
     Dosage: 10 MILLIGRAM, QD, 1 CP 10/10MG PAR JOUR
     Route: 048
  4. ESIDREX [Concomitant]
     Active Substance: HYDROCHLOROTHIAZIDE
     Indication: Hypertension
     Dosage: 25 MILLIGRAM, QD
     Route: 048
  5. NEBIVOLOL [Concomitant]
     Active Substance: NEBIVOLOL
     Indication: Hypertension
     Dosage: 5 MILLIGRAM, QD
     Route: 048
  6. VICTOZA [Concomitant]
     Active Substance: LIRAGLUTIDE
     Indication: Insulin-requiring type 2 diabetes mellitus
     Dosage: 1.8 MILLIGRAM, QD
     Route: 058
  7. ATORVASTATINE                      /01326101/ [Concomitant]
     Indication: Dyslipidaemia
     Dosage: 10 MILLIGRAM, QD
     Route: 048
  8. NOVORAPID [Concomitant]
     Active Substance: INSULIN ASPART
     Indication: Insulin-requiring type 2 diabetes mellitus
     Dosage: 100 UI/ML SELON GLYC?MIE
     Route: 058

REACTIONS (3)
  - Rhinocerebral mucormycosis [Fatal]
  - Bronchopulmonary aspergillosis [Not Recovered/Not Resolved]
  - Herpes simplex test positive [Not Recovered/Not Resolved]

NARRATIVE: CASE EVENT DATE: 20210216
